FAERS Safety Report 6000214-3 (Version None)
Quarter: 2008Q4

REPORT INFORMATION
  Report Type: 
  Country: None (occurrence: None)
  Receive Date: 20081211
  Receipt Date: 20081211
  Transmission Date: 20090506
  Serious: Yes (Hospitalization)
  Sender: FDA-Public Use
  Company Number: None

PATIENT
  Age: 61 Year
  Sex: Male

DRUGS (1)
  1. SULFAMETHOXAZOLE AND TRIMETHOPRIM [Suspect]
     Indication: STAPHYLOCOCCAL BACTERAEMIA
     Dosage: 1 TAB MG OTHER PO
     Route: 048
     Dates: start: 20081104, end: 20081127

REACTIONS (4)
  - CLOSTRIDIAL INFECTION [None]
  - METABOLIC ACIDOSIS [None]
  - OSTEOMYELITIS [None]
  - PSEUDOMEMBRANOUS COLITIS [None]
